FAERS Safety Report 8880094 (Version 3)
Quarter: 2013Q3

REPORT INFORMATION
  Report Type: Report from Study
  Country: DE (occurrence: DE)
  Receive Date: 20121031
  Receipt Date: 20130822
  Transmission Date: 20140515
  Serious: Yes (Hospitalization)
  Sender: FDA-Public Use
  Company Number: DE-ROCHE-1142983

PATIENT
  Age: 70 Year
  Sex: Female
  Weight: 72 kg

DRUGS (3)
  1. BEVACIZUMAB [Suspect]
     Indication: BREAST CANCER
     Dosage: LAST DOSE PRIOR TO SAE ADMINISTERED ON 20/SEP/2012
     Route: 042
     Dates: start: 20120830
  2. PACLITAXEL [Suspect]
     Indication: BREAST CANCER
     Route: 065
  3. DOXORUBICIN [Suspect]
     Indication: BREAST CANCER
     Dosage: LAST DOSE PRIOR TO SAE ADMINISTERED ON 28/SEP/2012
     Route: 042
     Dates: start: 20120830

REACTIONS (2)
  - Systemic inflammatory response syndrome [Recovered/Resolved]
  - Liver abscess [Recovered/Resolved]
